FAERS Safety Report 20654044 (Version 21)
Quarter: 2024Q2

REPORT INFORMATION
  Report Type: Spontaneous
  Country: GB (occurrence: GB)
  Receive Date: 20220330
  Receipt Date: 20240620
  Transmission Date: 20240716
  Serious: Yes (Hospitalization, Other)
  Sender: FDA-Public Use
  Company Number: GB-MYLANLABS-2022M1022832

PATIENT
  Age: 62 Year
  Sex: Male

DRUGS (7)
  1. CLOZARIL [Suspect]
     Active Substance: CLOZAPINE
     Indication: Schizophrenia
     Dosage: UNK
     Route: 048
     Dates: start: 20021216
  2. CLOZARIL [Suspect]
     Active Substance: CLOZAPINE
     Dosage: UNK; START DATE: 12-OCT-2022
     Route: 048
  3. CLOZARIL [Suspect]
     Active Substance: CLOZAPINE
     Dosage: UNK; START DATE: 12-OCT-2022
     Route: 048
     Dates: end: 202302
  4. CLOZARIL [Suspect]
     Active Substance: CLOZAPINE
     Dosage: UNK; START DATE: 12-OCT-2022
     Route: 048
     Dates: end: 20230112
  5. CLOZAPINE [Suspect]
     Active Substance: CLOZAPINE
     Indication: Product used for unknown indication
     Dosage: 250 MILLIGRAM (NIGHT), 50 MG (MORNING)
     Route: 065
  6. PIRENZEPINE [Suspect]
     Active Substance: PIRENZEPINE
     Indication: Product used for unknown indication
     Dosage: 50MG MORNING AND 50MG IN NIGHT)
     Route: 065
  7. FILGRASTIM [Concomitant]
     Active Substance: FILGRASTIM
     Indication: Neutrophil count abnormal
     Dosage: 300 MILLIGRAM, QD
     Route: 065

REACTIONS (37)
  - Schizophrenia [Unknown]
  - Hospitalisation [Not Recovered/Not Resolved]
  - Delirium [Unknown]
  - Urinary retention [Unknown]
  - Paedophilia [Unknown]
  - Mania [Unknown]
  - Insomnia [Unknown]
  - Malaise [Not Recovered/Not Resolved]
  - Syncope [Unknown]
  - Alanine aminotransferase increased [Not Recovered/Not Resolved]
  - Urinary incontinence [Unknown]
  - Liver function test abnormal [Unknown]
  - Haemoglobin decreased [Not Recovered/Not Resolved]
  - Pneumothorax [Unknown]
  - Leukaemia [Unknown]
  - White blood cell count decreased [Recovering/Resolving]
  - Neutrophil count decreased [Recovering/Resolving]
  - Gamma-glutamyltransferase increased [Unknown]
  - Blood alkaline phosphatase increased [Unknown]
  - Fall [Unknown]
  - Rib fracture [Unknown]
  - Haematocrit decreased [Unknown]
  - Red blood cell count decreased [Not Recovered/Not Resolved]
  - Mean cell haemoglobin decreased [Unknown]
  - Mean cell haemoglobin concentration decreased [Not Recovered/Not Resolved]
  - Lymphocyte count decreased [Unknown]
  - Drug ineffective [Unknown]
  - Blood fibrinogen increased [Unknown]
  - Red cell distribution width increased [Unknown]
  - Adjusted calcium decreased [Unknown]
  - Blood immunoglobulin A decreased [Unknown]
  - Blood immunoglobulin G decreased [Unknown]
  - Blood lactate dehydrogenase increased [Unknown]
  - C-reactive protein increased [Unknown]
  - Blood prolactin increased [Unknown]
  - Off label use [Unknown]
  - Product dose omission issue [Unknown]

NARRATIVE: CASE EVENT DATE: 20220322
